FAERS Safety Report 13078793 (Version 2)
Quarter: 2017Q1

REPORT INFORMATION
  Report Type: Spontaneous
  Country: DE (occurrence: DE)
  Receive Date: 20170102
  Receipt Date: 20170313
  Transmission Date: 20170428
  Serious: Yes (Other)
  Sender: FDA-Public Use
  Company Number: DE-TEVA-723329GER

PATIENT
  Sex: Male

DRUGS (1)
  1. SIMVASTATIN-RATIOPHARM 40 MG FILMTABLETTEN [Suspect]
     Active Substance: SIMVASTATIN
     Dosage: 40 MILLIGRAM DAILY;

REACTIONS (1)
  - Diarrhoea haemorrhagic [Recovered/Resolved]
